FAERS Safety Report 10501820 (Version 1)
Quarter: 2014Q4

REPORT INFORMATION
  Report Type: Spontaneous
  Country: US (occurrence: US)
  Receive Date: 20141007
  Receipt Date: 20141007
  Transmission Date: 20150528
  Serious: Yes (Other)
  Sender: FDA-Public Use
  Company Number: US-PFIZER INC-2014270697

PATIENT
  Age: 73 Year
  Sex: Male
  Weight: 155 kg

DRUGS (3)
  1. LYRICA [Suspect]
     Active Substance: PREGABALIN
     Indication: NEUROPATHY PERIPHERAL
     Dosage: UNK, 2X/DAY
     Dates: start: 20140917, end: 20140920
  2. AVODART [Concomitant]
     Active Substance: DUTASTERIDE
     Dosage: 0.5 MG, DAILY
  3. AMIODARONE [Concomitant]
     Active Substance: AMIODARONE
     Dosage: 200 MG, DAILY

REACTIONS (3)
  - Neuropathy peripheral [Unknown]
  - Gastrointestinal haemorrhage [Unknown]
  - Peripheral swelling [Unknown]

NARRATIVE: CASE EVENT DATE: 201409
